FAERS Safety Report 19785737 (Version 1)
Quarter: 2021Q3

REPORT INFORMATION
  Report Type: Report from Study
  Country: CA (occurrence: CA)
  Receive Date: 20210903
  Receipt Date: 20210903
  Transmission Date: 20211014
  Serious: Yes (Hospitalization, Other)
  Sender: FDA-Public Use
  Company Number: CA-ACCORD-237037

PATIENT
  Sex: Female

DRUGS (5)
  1. METHOTREXATE. [Suspect]
     Active Substance: METHOTREXATE
     Indication: PRODUCT USED FOR UNKNOWN INDICATION
  2. PREDNISONE. [Concomitant]
     Active Substance: PREDNISONE
  3. ENBREL [Interacting]
     Active Substance: ETANERCEPT
     Indication: RHEUMATOID ARTHRITIS
  4. CELEBREX [Concomitant]
     Active Substance: CELECOXIB
  5. SEPTRA [Interacting]
     Active Substance: SULFAMETHOXAZOLE\TRIMETHOPRIM
     Indication: KIDNEY INFECTION

REACTIONS (22)
  - Facial bones fracture [Unknown]
  - Gait disturbance [Unknown]
  - Illness [Unknown]
  - Toxicity to various agents [Unknown]
  - Kidney infection [Unknown]
  - Pain in extremity [Unknown]
  - Fall [Unknown]
  - Blood pressure decreased [Unknown]
  - Injection site pain [Unknown]
  - Peripheral swelling [Unknown]
  - Urinary tract infection [Unknown]
  - Muscle spasms [Unknown]
  - Pneumonia [Unknown]
  - Tremor [Unknown]
  - Decreased immune responsiveness [Unknown]
  - Wrist fracture [Unknown]
  - Musculoskeletal chest pain [Unknown]
  - Musculoskeletal stiffness [Unknown]
  - Septic shock [Unknown]
  - Drug interaction [Unknown]
  - Rheumatoid arthritis [Unknown]
  - Sepsis [Unknown]
